FAERS Safety Report 10655747 (Version 1)
Quarter: 2014Q4

REPORT INFORMATION
  Report Type: Spontaneous
  Country: IN (occurrence: IN)
  Receive Date: 20141216
  Receipt Date: 20141216
  Transmission Date: 20150529
  Serious: Yes (Hospitalization)
  Sender: FDA-Public Use
  Company Number: PHHY2014IN160976

PATIENT
  Age: 34 Year
  Sex: Male

DRUGS (4)
  1. NEVIRAPINE. [Suspect]
     Active Substance: NEVIRAPINE
     Indication: OPPORTUNISTIC INFECTION PROPHYLAXIS
     Route: 065
  2. ZIDOVUDINE. [Suspect]
     Active Substance: ZIDOVUDINE
     Indication: OPPORTUNISTIC INFECTION PROPHYLAXIS
     Route: 065
  3. LAMIVUDINE. [Suspect]
     Active Substance: LAMIVUDINE
     Indication: OPPORTUNISTIC INFECTION PROPHYLAXIS
     Route: 065
  4. FLUCONAZOLE. [Concomitant]
     Active Substance: FLUCONAZOLE
     Indication: OPPORTUNISTIC INFECTION PROPHYLAXIS
     Dosage: 400 MG, 24HRS FOR 8 WEEKS
     Route: 048

REACTIONS (9)
  - Amnesia [Unknown]
  - Immune reconstitution inflammatory syndrome [Recovered/Resolved]
  - Pyrexia [Unknown]
  - Vomiting [Unknown]
  - Headache [Unknown]
  - Disorientation [Unknown]
  - Meningitis cryptococcal [Recovered/Resolved]
  - Vision blurred [Unknown]
  - Metastases to meninges [Recovered/Resolved]
